FAERS Safety Report 8287136-2 (Version None)
Quarter: 2012Q2

REPORT INFORMATION
  Report Type: 
  Country: None (occurrence: None)
  Receive Date: 20120416
  Receipt Date: 20120412
  Transmission Date: 20120825
  Serious: Yes (Life-Threatening, Hospitalization)
  Sender: FDA-Public Use
  Company Number: US-US-EMD SERONO, INC.-7125881

PATIENT
  Sex: Male

DRUGS (4)
  1. PROZAC [Concomitant]
     Indication: DEPRESSION
  2. TETRACYCLINE [Concomitant]
     Indication: SEBORRHOEA
  3. VITAMIN D [Concomitant]
     Indication: PRODUCT USED FOR UNKNOWN INDICATION
  4. REBIF [Suspect]
     Indication: MULTIPLE SCLEROSIS
     Route: 058
     Dates: start: 20060308, end: 20120301

REACTIONS (5)
  - MULTIPLE SCLEROSIS RELAPSE [None]
  - SPINAL FRACTURE [None]
  - ROAD TRAFFIC ACCIDENT [None]
  - PARALYSIS [None]
  - INFECTION [None]
